FAERS Safety Report 5094147-7 (Version None)
Quarter: 2006Q3

REPORT INFORMATION
  Report Type: 
  Country: None (occurrence: None)
  Receive Date: 20060831
  Receipt Date: 20060822
  Transmission Date: 20061208
  Serious: Yes (Life-Threatening, Hospitalization)
  Sender: FDA-Public Use
  Company Number: BR-JNJFOC-20060805276

PATIENT
  Age: 2 Year
  Sex: Male

DRUGS (2)
  1. HALDOL [Suspect]
     Indication: DRUG USE FOR UNKNOWN INDICATION
     Route: 048
  2. IMIPRAMINE [Suspect]
     Indication: DRUG USE FOR UNKNOWN INDICATION

REACTIONS (5)
  - ACCIDENTAL DRUG INTAKE BY CHILD [None]
  - APATHY [None]
  - DECREASED ACTIVITY [None]
  - MIOSIS [None]
  - SOMNOLENCE [None]
